FAERS Safety Report 15451209 (Version 1)
Quarter: 2018Q4

REPORT INFORMATION
  Report Type: Report from Study
  Country: IN (occurrence: IN)
  Receive Date: 20181001
  Receipt Date: 20181001
  Transmission Date: 20190204
  Serious: Yes (Death)
  Sender: FDA-Public Use
  Company Number: IN-PFIZER INC-2018371134

PATIENT
  Age: 53 Year
  Sex: Male

DRUGS (10)
  1. COLISTIN [Suspect]
     Active Substance: COLISTIN
     Indication: SEPTIC SHOCK
  2. LEVOFLOXACIN. [Suspect]
     Active Substance: LEVOFLOXACIN
     Indication: TRAUMATIC HAEMOTHORAX
     Dosage: UNK
     Route: 042
  3. MEROPENEM. [Suspect]
     Active Substance: MEROPENEM
     Indication: SEPTIC SHOCK
  4. TIGECYCLINE. [Suspect]
     Active Substance: TIGECYCLINE
     Indication: SEPTIC SHOCK
  5. MEROPENEM. [Suspect]
     Active Substance: MEROPENEM
     Indication: TRAUMATIC HAEMOTHORAX
     Dosage: 1 G, 3X/DAY
     Route: 042
  6. AUGMENTIN BD [Concomitant]
     Active Substance: AMOXICILLIN\CLAVULANIC ACID
     Dosage: 1.2 G, UNK
     Route: 042
  7. LEVOFLOXACIN. [Suspect]
     Active Substance: LEVOFLOXACIN
     Indication: SEPTIC SHOCK
  8. TIGECYCLINE. [Suspect]
     Active Substance: TIGECYCLINE
     Indication: TRAUMATIC HAEMOTHORAX
     Dosage: 50 MG, 2X/DAY
     Route: 042
  9. METROGYL [METRONIDAZOLE] [Concomitant]
     Dosage: 750 MG, UNK
     Route: 042
  10. COLISTIN [Suspect]
     Active Substance: COLISTIN
     Indication: TRAUMATIC HAEMOTHORAX
     Dosage: UNK, 2X/DAY (4.5 MILLION IU)
     Route: 042

REACTIONS (1)
  - Pathogen resistance [Fatal]
